FAERS Safety Report 10084427 (Version 2)
Quarter: 2014Q2

REPORT INFORMATION
  Report Type: Spontaneous
  Country: FR (occurrence: FR)
  Receive Date: 20140417
  Receipt Date: 20140624
  Transmission Date: 20141212
  Serious: Yes (Congenital Anomaly)
  Sender: FDA-Public Use
  Company Number: FR-WATSON-2014-07838

PATIENT
  Age: 0 Year
  Sex: 0
  Weight: 3 kg

DRUGS (1)
  1. IBUPROFENE ARROW [Suspect]
     Indication: PRODUCT USED FOR UNKNOWN INDICATION
     Dosage: 800 MG, SINGLE
     Route: 064
     Dates: start: 20140112

REACTIONS (2)
  - Thyroid disorder [Unknown]
  - Foetal exposure timing unspecified [Unknown]
